FAERS Safety Report 9821740 (Version 1)
Quarter: 2014Q1

REPORT INFORMATION
  Report Type: Spontaneous
  Country: US (occurrence: US)
  Receive Date: 20140116
  Receipt Date: 20140116
  Transmission Date: 20141002
  Serious: No
  Sender: FDA-Public Use
  Company Number: US-PFIZER INC-2014013117

PATIENT
  Age: 44 Year
  Sex: Female
  Weight: 79.37 kg

DRUGS (4)
  1. GABAPENTIN [Suspect]
     Indication: FIBROMYALGIA
     Dosage: 300 MG, 3X/DAY
     Route: 048
     Dates: start: 2005
  2. GABAPENTIN [Suspect]
     Indication: SPINAL DISORDER
     Dosage: 600 MG, 3X/DAY
     Route: 048
     Dates: end: 201401
  3. GABAPENTIN [Suspect]
     Indication: SPINAL COLUMN STENOSIS
  4. TRAMADOL [Concomitant]
     Dosage: UNK

REACTIONS (3)
  - Off label use [Unknown]
  - Gait disturbance [Recovered/Resolved]
  - Drug ineffective for unapproved indication [Unknown]
